FAERS Safety Report 24592324 (Version 1)
Quarter: 2024Q4

REPORT INFORMATION
  Report Type: Spontaneous
  Country: US (occurrence: US)
  Receive Date: 20241108
  Receipt Date: 20241108
  Transmission Date: 20250115
  Serious: Yes (Death, Hospitalization, Other)
  Sender: NOVITIUM PHARMA
  Company Number: US-NOVITIUMPHARMA-2024USNVP02475

PATIENT
  Age: 52 Year
  Sex: Female

DRUGS (7)
  1. PREDNISONE [Suspect]
     Active Substance: PREDNISONE
     Indication: Dermatitis exfoliative generalised
     Route: 048
  2. PREDNISONE [Suspect]
     Active Substance: PREDNISONE
     Indication: Cutaneous T-cell lymphoma stage II
  3. DOXYCYCLINE [Concomitant]
     Active Substance: DOXYCYCLINE
     Indication: Evidence based treatment
  4. RITUXIMAB [Concomitant]
     Active Substance: RITUXIMAB
  5. CYCLOPHOSPHAMIDE [Concomitant]
     Active Substance: CYCLOPHOSPHAMIDE
  6. Doxorubicin [hydroxydaunorubicin] [Concomitant]
  7. ONCOVIN [Concomitant]
     Active Substance: VINCRISTINE SULFATE

REACTIONS (2)
  - Sepsis [Fatal]
  - Drug ineffective [Unknown]
